FAERS Safety Report 14594741 (Version 1)
Quarter: 2018Q1

REPORT INFORMATION
  Report Type: Spontaneous
  Country: US (occurrence: US)
  Receive Date: 20180302
  Receipt Date: 20180302
  Transmission Date: 20180509
  Serious: No
  Sender: FDA-Public Use
  Company Number: US-AKORN PHARMACEUTICALS-2017AKN01036

PATIENT
  Sex: Female

DRUGS (5)
  1. MYORISAN [Suspect]
     Active Substance: ISOTRETINOIN
     Indication: ACNE
     Dosage: 20 MG, 1X/DAY
     Route: 048
     Dates: start: 20170628, end: 201707
  2. UNSPECIFIED ANTIBIOTICS [Concomitant]
     Active Substance: UNSPECIFIED INGREDIENT
  3. MIRENA [Concomitant]
     Active Substance: LEVONORGESTREL
  4. MYORISAN [Suspect]
     Active Substance: ISOTRETINOIN
     Dosage: 40 MG, 1X/DAY
     Route: 048
     Dates: start: 20170628, end: 201707
  5. ALLEGRA [Concomitant]
     Active Substance: FEXOFENADINE HYDROCHLORIDE

REACTIONS (3)
  - Headache [Recovered/Resolved]
  - Mass [Unknown]
  - Ear infection [Unknown]

NARRATIVE: CASE EVENT DATE: 2017
